FAERS Safety Report 5478393-6 (Version None)
Quarter: 2007Q4

REPORT INFORMATION
  Report Type: 
  Country: None (occurrence: None)
  Receive Date: 20071005
  Receipt Date: 20070925
  Transmission Date: 20080405
  Serious: Yes (Hospitalization)
  Sender: FDA-Public Use
  Company Number: B0489721A

PATIENT
  Age: 87 Year
  Sex: Female

DRUGS (2)
  1. AUGMENTIN '125' [Suspect]
     Indication: TOOTH ABSCESS
     Dosage: 1000MG SINGLE DOSE
     Route: 048
     Dates: start: 20070123, end: 20070123
  2. NUREFLEX [Suspect]
     Indication: TOOTH ABSCESS
     Route: 048
     Dates: start: 20070123, end: 20070123

REACTIONS (10)
  - ACUTE GENERALISED EXANTHEMATOUS PUSTULOSIS [None]
  - BLISTER [None]
  - ERYTHEMA [None]
  - HYPERSENSITIVITY [None]
  - LEUKOCYTOSIS [None]
  - NIKOLSKY'S SIGN [None]
  - PAINFUL RESPIRATION [None]
  - PRURITUS [None]
  - RASH PUSTULAR [None]
  - TOXIC SKIN ERUPTION [None]
